FAERS Safety Report 8784725 (Version 2)
Quarter: 2012Q4

REPORT INFORMATION
  Report Type: Spontaneous
  Country: US (occurrence: None)
  Receive Date: 20120828
  Receipt Date: 20120920
  Transmission Date: 20130627
  Serious: Yes (Disabling, Other)
  Sender: FDA-Public Use
  Company Number: ACO_31596_2012

PATIENT
  Sex: Female

DRUGS (14)
  1. AMPYRA [Suspect]
     Indication: MULTIPLE SCLEROSIS
     Route: 048
     Dates: start: 20120417
  2. AVONEX [Suspect]
  3. VITAMIN B COMPLEX (CALCIUM PANTOTHENATE, NICOTINAMIDE, PYRIDOXINE HYDROCHLORIDE, RIBOFLAVIN, THIAMINE HYDROCHLORIDE) [Concomitant]
  4. CALCIUM (CALCIUM) [Concomitant]
  5. COUMADIN (WARFARIN SODIUM) [Concomitant]
  6. DULCOLAX (BISACODYL) [Concomitant]
  7. LISINOPRIL (LISINOPRIL) [Concomitant]
  8. METAMUCIL (PLANTAGO OVATA) [Concomitant]
  9. MIRALAX (MACROGOL) [Concomitant]
  10. MULTIVITAMIN (VITAMINS NOS) [Concomitant]
  11. NEURONTIN (GABAPENTIN) [Concomitant]
  12. OMEGA-3 (DOCOSAHEXAENOIC ACID, EICOSAPENTAENOIC ACID) [Concomitant]
  13. PREDNISONE (PREDNISONE) [Concomitant]
  14. TEGRETAL (CARBAMAZEPINE) [Concomitant]

REACTIONS (3)
  - Movement disorder [None]
  - Abasia [None]
  - Activities of daily living impaired [None]
